FAERS Safety Report 22053310 (Version 1)
Quarter: 2023Q1

REPORT INFORMATION
  Report Type: Spontaneous
  Country: CN (occurrence: CN)
  Receive Date: 20230302
  Receipt Date: 20230302
  Transmission Date: 20230418
  Serious: Yes (Other)
  Sender: FDA-Public Use
  Company Number: None

PATIENT
  Age: 59 Year
  Sex: Female
  Weight: 54 kg

DRUGS (7)
  1. CYCLOPHOSPHAMIDE [Suspect]
     Active Substance: CYCLOPHOSPHAMIDE
     Indication: Invasive breast carcinoma
     Dosage: AT 08:24, 0.8 G, QD, DILUTED WITH 0.9% SODIUM CHLORIDE 100 ML, EC-T REGIMEN, SECOND CHEMOTHERAPY
     Route: 041
     Dates: start: 20230128, end: 20230128
  2. CYCLOPHOSPHAMIDE [Suspect]
     Active Substance: CYCLOPHOSPHAMIDE
     Indication: Chemotherapy
  3. SODIUM CHLORIDE [Suspect]
     Active Substance: SODIUM CHLORIDE
     Indication: Medication dilution
     Dosage: AT 08:24, 100 ML, QD, STRENGTH: 0.9%, DOSAGE FORM: INJECTION, USED TO DILUTE EPIRUBICIN HYDROCHLORID
     Route: 041
     Dates: start: 20230128, end: 20230128
  4. EPIRUBICIN [Suspect]
     Active Substance: EPIRUBICIN
     Indication: Invasive breast carcinoma
     Dosage: AT 08:24, 135 MG, QD, DILUTED WITH 0.9% SODIUM CHLORIDE 100 ML, EC-T REGIMEN, SECOND CHEMOTHERAPY
     Route: 041
     Dates: start: 20230128, end: 20230128
  5. EPIRUBICIN [Suspect]
     Active Substance: EPIRUBICIN
     Indication: Chemotherapy
  6. SODIUM CHLORIDE [Suspect]
     Active Substance: SODIUM CHLORIDE
     Indication: Invasive breast carcinoma
     Dosage: AT 08:24, 100 ML, QD, USED TO DILUTE CYCLOPHOSPHAMIDE 0.8G, EC-T REGIMEN, SECOND CHEMOTHERAPY
     Route: 041
     Dates: start: 20230128, end: 20230128
  7. SODIUM CHLORIDE [Suspect]
     Active Substance: SODIUM CHLORIDE
     Indication: Chemotherapy

REACTIONS (2)
  - White blood cell count decreased [Recovering/Resolving]
  - Neutrophil count decreased [Recovering/Resolving]

NARRATIVE: CASE EVENT DATE: 20230130
